FAERS Safety Report 9738439 (Version 6)
Quarter: 2014Q1

REPORT INFORMATION
  Report Type: Report from Study
  Country: CA (occurrence: CA)
  Receive Date: 20131208
  Receipt Date: 20140317
  Transmission Date: 20141002
  Serious: Yes (Other)
  Sender: FDA-Public Use
  Company Number: CA-ROCHE-1148266

PATIENT
  Age: 76 Year
  Sex: Male
  Weight: 100 kg

DRUGS (16)
  1. ACTEMRA [Suspect]
     Indication: RHEUMATOID ARTHRITIS
     Route: 042
     Dates: start: 20120213, end: 20140209
  2. METFORMIN [Concomitant]
  3. ALLOPURINOL [Concomitant]
  4. LEVOTHYROXINE SODIUM [Concomitant]
  5. FERROUS GLUCONATE [Concomitant]
  6. METHOTREXATE [Concomitant]
  7. SIMVASTATIN [Concomitant]
  8. SOTALOL [Concomitant]
  9. PANTOPRAZOLE [Concomitant]
  10. ATIVAN [Concomitant]
  11. JANUVIA [Concomitant]
  12. GLICLAZIDE [Concomitant]
  13. PREDNISONE [Concomitant]
  14. TYLENOL EXTRA STRENGTH [Concomitant]
  15. PLAVIX [Concomitant]
  16. ASA [Concomitant]

REACTIONS (16)
  - Aphasia [Recovered/Resolved]
  - Visual impairment [Recovered/Resolved]
  - Squamous cell carcinoma of skin [Unknown]
  - Cerebrovascular accident [Unknown]
  - Swelling [Not Recovered/Not Resolved]
  - Diverticulitis [Unknown]
  - Rash [Not Recovered/Not Resolved]
  - Fungal infection [Not Recovered/Not Resolved]
  - Heart rate increased [Unknown]
  - Nasopharyngitis [Recovered/Resolved]
  - Heart rate decreased [Unknown]
  - Device malfunction [Unknown]
  - Weight increased [Unknown]
  - Thermal burn [Unknown]
  - Headache [Unknown]
  - Fatigue [Unknown]
